FAERS Safety Report 9006559 (Version 2)
Quarter: 2013Q1

REPORT INFORMATION
  Report Type: Spontaneous
  Country: NL (occurrence: NL)
  Receive Date: 20130110
  Receipt Date: 20130128
  Transmission Date: 20140127
  Serious: Yes (Hospitalization)
  Sender: FDA-Public Use
  Company Number: PHHY2013NL001824

PATIENT
  Sex: Male

DRUGS (2)
  1. ZOMETA [Suspect]
     Indication: PROSTATE CANCER METASTATIC
     Dosage: 4 MG, PER 28 DAYS
     Route: 042
     Dates: start: 20121205
  2. ANTIEPILEPTICS [Concomitant]

REACTIONS (2)
  - Altered state of consciousness [Recovered/Resolved]
  - Confusional state [Unknown]
